FAERS Safety Report 19065498 (Version 2)
Quarter: 2021Q2

REPORT INFORMATION
  Report Type: Spontaneous
  Country: AT (occurrence: AT)
  Receive Date: 20210327
  Receipt Date: 20210610
  Transmission Date: 20210717
  Serious: Yes (Hospitalization, Other)
  Sender: FDA-Public Use
  Company Number: NVSC2020AT120978

PATIENT
  Age: 54 Year
  Sex: Female
  Weight: 75 kg

DRUGS (61)
  1. METHOTREXATE. [Suspect]
     Active Substance: METHOTREXATE
     Indication: HER2 POSITIVE BREAST CANCER
     Dosage: 2.5MG (2.5 MG, 0.5 WEEK, MOST RECENT DOSE ON 09/MAR/2020)
     Route: 048
     Dates: start: 20200219, end: 20200309
  2. PACLITAXEL. [Suspect]
     Active Substance: PACLITAXEL
     Indication: BREAST CANCER
     Dosage: 177.17 MG, QW
     Route: 042
     Dates: start: 20180612, end: 20180612
  3. VINORELBINE [Suspect]
     Active Substance: VINORELBINE TARTRATE
     Indication: HER2 POSITIVE BREAST CANCER
     Dosage: 50 MG (RECENT DOSE: 28/OCT/2019)
     Route: 048
     Dates: start: 20191011, end: 20191025
  4. TRASTUZUMAB. [Suspect]
     Active Substance: TRASTUZUMAB
     Dosage: 378MG (378 MG, 3 WEEKS)
     Route: 042
     Dates: start: 20181214, end: 20190109
  5. PERTUZUMAB. [Suspect]
     Active Substance: PERTUZUMAB
     Dosage: 840MG (840 MG, 3 WEEKS, MOST RECENT DOSE PRIOR TO THE EVENT: 14/DEC/2018)
     Route: 042
     Dates: start: 20180328, end: 20180328
  6. PANTOLOC [Concomitant]
     Active Substance: PANTOPRAZOLE SODIUM
     Dosage: UNK (UNK)
     Route: 065
     Dates: start: 20191011, end: 20200410
  7. ENTEROBENE [Concomitant]
     Indication: PRODUCT USED FOR UNKNOWN INDICATION
     Dosage: UNK (UNK)
     Route: 065
     Dates: start: 20200108, end: 20200113
  8. CAPECITABINE. [Suspect]
     Active Substance: CAPECITABINE
     Indication: HER2 POSITIVE BREAST CANCER
     Dosage: 500MG (500 MG, FREQUENCY: OTHER MOST RECENT DOSE PRIOR TO THE EVENT: 19/DEC/2019)
     Route: 048
     Dates: start: 20191126, end: 20191218
  9. PACLITAXEL. [Suspect]
     Active Substance: PACLITAXEL
     Dosage: 147.76 MG, QW
     Route: 042
     Dates: start: 20180522, end: 20180529
  10. TRASTUZUMAB. [Suspect]
     Active Substance: TRASTUZUMAB
     Indication: HER2 POSITIVE BREAST CANCER
     Dosage: 600MG (600 MG, 3 WEEKS, MOST RECENT DOSE PRIOR TO THE EVENT: 11/OCT/2019.)
     Route: 042
     Dates: start: 20180328, end: 20180328
  11. TRASTUZUMAB. [Suspect]
     Active Substance: TRASTUZUMAB
     Dosage: 384MG (384 MG, 3 WEEKS)
     Route: 042
     Dates: start: 20180515, end: 20180605
  12. TAXOL [Suspect]
     Active Substance: PACLITAXEL
     Indication: HER2 POSITIVE BREAST CANCER
     Dosage: 147.76 MG WEEKLY RECENT DOSE ON 09/APR/2018
     Route: 042
     Dates: start: 20180328, end: 20180409
  13. TRASTUZUMAB EMTANSINE [Suspect]
     Active Substance: ADO-TRASTUZUMAB EMTANSINE
     Indication: BREAST CANCER
     Dosage: DOSE ON 17/MAY/2019MOST RECENT DOSE PRIOR TO THE EVENT: 28/JUN/2019
     Route: 042
     Dates: start: 20190131, end: 20190517
  14. ABRAXANE [Suspect]
     Active Substance: PACLITAXEL
     Indication: HER2 POSITIVE BREAST CANCER
  15. PERTUZUMAB. [Suspect]
     Active Substance: PERTUZUMAB
     Dosage: 420MG (420 MG, 3 WEEKS)
     Route: 042
     Dates: start: 20180423, end: 20180423
  16. XGEVA [Concomitant]
     Active Substance: DENOSUMAB
     Indication: PRODUCT USED FOR UNKNOWN INDICATION
     Dosage: UNK (UNK)
     Route: 065
     Dates: start: 20191219, end: 20200410
  17. CYCLOPHOSPHAMIDE. [Suspect]
     Active Substance: CYCLOPHOSPHAMIDE
     Indication: HER2 POSITIVE BREAST CANCER
     Dosage: 2.5 MG
     Route: 048
  18. CYCLOPHOSPHAMIDE. [Suspect]
     Active Substance: CYCLOPHOSPHAMIDE
     Dosage: UNK
     Route: 065
  19. CYCLOPHOSPHAMIDE. [Suspect]
     Active Substance: CYCLOPHOSPHAMIDE
     Dosage: 50MG (50 MG, QD, MOST RECENT DOSE ON 09/MAR/2020)
     Route: 048
     Dates: start: 20200219, end: 20200309
  20. TRASTUZUMAB. [Suspect]
     Active Substance: TRASTUZUMAB
     Dosage: 600MG (600 MG, 3 WEEKS)
     Route: 042
     Dates: start: 20191011, end: 20191011
  21. NAVELBINE [Suspect]
     Active Substance: VINORELBINE TARTRATE
     Indication: HER2 POSITIVE BREAST CANCER
     Dosage: 50 UG (RECENT DOSE: 28 OCT 2019)
     Route: 048
     Dates: start: 20191011
  22. PACLITAXEL. [Suspect]
     Active Substance: PACLITAXEL
     Dosage: 171.51 MG, QW
     Route: 042
     Dates: start: 20190109, end: 20190109
  23. TRASTUZUMAB. [Suspect]
     Active Substance: TRASTUZUMAB
     Indication: BREAST CANCER
     Dosage: 378 MG, TIW (MOST RECENT DOSE WAS RECEIVED ON 09/JAN/2019)
     Route: 041
     Dates: start: 20181123, end: 20181123
  24. TRASTUZUMAB. [Suspect]
     Active Substance: TRASTUZUMAB
     Dosage: 378MG (378 MG, 3 WEEK, MOST RECENT DOSE WAS RECEIVED ON 09/JAN/2019.)
     Route: 042
     Dates: start: 20181102, end: 20181123
  25. TRASTUZUMAB EMTANSINE [Suspect]
     Active Substance: ADO-TRASTUZUMAB EMTANSINE
     Indication: HER2 POSITIVE BREAST CANCER
     Dosage: UNK
     Route: 065
  26. NERATINIB [Suspect]
     Active Substance: NERATINIB
     Indication: HER2 POSITIVE BREAST CANCER
     Dosage: 1440 MG, QD
     Route: 048
     Dates: start: 20200108, end: 20200118
  27. NERATINIB [Suspect]
     Active Substance: NERATINIB
     Dosage: 1440 MG, QD
     Route: 048
     Dates: start: 20200119, end: 20200129
  28. NERATINIB [Suspect]
     Active Substance: NERATINIB
     Dosage: 1440MG (1440 MG, QD)
     Route: 048
     Dates: start: 20200119, end: 20200129
  29. NERATINIB [Suspect]
     Active Substance: NERATINIB
     Dosage: 1440MG (1440 MG, QD)
     Route: 048
     Dates: start: 20200108, end: 20200118
  30. DEXAMETHASONE. [Concomitant]
     Active Substance: DEXAMETHASONE
     Indication: PRODUCT USED FOR UNKNOWN INDICATION
     Dosage: UNK (UNK)
     Route: 065
     Dates: start: 20190628, end: 20190830
  31. HYDAL [Concomitant]
     Active Substance: HYDROMORPHONE HYDROCHLORIDE
     Indication: PRODUCT USED FOR UNKNOWN INDICATION
     Dosage: UNK
     Route: 065
     Dates: start: 20200228, end: 20200410
  32. CAPECITABINE. [Suspect]
     Active Substance: CAPECITABINE
     Indication: BREAST CANCER
     Dosage: 500MG (500 MG, UNK)
     Route: 048
     Dates: start: 20191219
  33. PACLITAXEL. [Suspect]
     Active Substance: PACLITAXEL
     Dosage: 172.67 MG, QW
     Route: 042
     Dates: start: 20190116, end: 20190116
  34. PACLITAXEL. [Suspect]
     Active Substance: PACLITAXEL
     Dosage: 172.67 MG, QW
     Route: 042
     Dates: start: 20190102, end: 20190102
  35. PACLITAXEL. [Suspect]
     Active Substance: PACLITAXEL
     Dosage: 172.67 MG, QW
     Route: 042
     Dates: start: 20180605, end: 20180605
  36. ABRAXANE [Suspect]
     Active Substance: PACLITAXEL
     Indication: HER2 POSITIVE BREAST CANCER
     Dosage: 177.17MG (177.17 MG, 08/MAY/2018MOST RECENT DOSE PRIOR TO THE EVENT: 16/JAN/2019)
     Route: 042
     Dates: start: 20180416
  37. PERTUZUMAB. [Suspect]
     Active Substance: PERTUZUMAB
     Indication: HER2 POSITIVE BREAST CANCER
     Dosage: 840 MG, 3 WEEKS, MOST RECENT DOSE PRIOR TO THE EVENT: 14/DEC/2018
     Route: 042
     Dates: start: 20180328, end: 20180328
  38. PERTUZUMAB. [Suspect]
     Active Substance: PERTUZUMAB
     Dosage: 420 MG, TIW
     Route: 042
     Dates: start: 20180423, end: 20180423
  39. PERTUZUMAB. [Suspect]
     Active Substance: PERTUZUMAB
     Dosage: 420MG (420 MG, 3 WEEKS)
     Route: 042
     Dates: start: 20181214, end: 20190109
  40. OCTENISEPT [Concomitant]
     Active Substance: OCTENIDINE\PHENOXYETHANOL
     Indication: ONYCHOLYSIS
     Dosage: UNK (UNK)
     Route: 065
     Dates: start: 20180725
  41. BEPANTHENE [Concomitant]
     Active Substance: DEXPANTHENOL
     Indication: ONYCHOLYSIS
     Dosage: UNK (UNK)
     Route: 065
     Dates: start: 20180725
  42. METHOTREXATE. [Suspect]
     Active Substance: METHOTREXATE
     Dosage: UNK
     Route: 065
  43. PACLITAXEL. [Suspect]
     Active Substance: PACLITAXEL
     Indication: HER2 POSITIVE BREAST CANCER
     Dosage: 147.76 MG (LAST DOSE 09/APR/2018)
     Route: 042
     Dates: start: 20180328, end: 20180409
  44. PACLITAXEL. [Suspect]
     Active Substance: PACLITAXEL
     Dosage: 171.51 MG, QW
     Route: 042
     Dates: start: 20181207, end: 20181221
  45. PACLITAXEL. [Suspect]
     Active Substance: PACLITAXEL
     Dosage: 177.17 MG, QW
     Route: 042
     Dates: start: 20180416, end: 20180508
  46. CYCLOPHOSPHAMIDE. [Suspect]
     Active Substance: CYCLOPHOSPHAMIDE
     Dosage: 50 MG, QD
     Route: 048
     Dates: start: 20200219, end: 20200309
  47. TAXOL [Suspect]
     Active Substance: PACLITAXEL
     Dosage: 147.76MG (147.76 MG WEEKLY RECENT DOSE ON 09/APR/2018)
     Route: 042
     Dates: start: 20180328
  48. TRASTUZUMAB EMTANSINE [Suspect]
     Active Substance: ADO-TRASTUZUMAB EMTANSINE
     Dosage: 230.4MG (230.4 MG, 3 WEEKS, DOSE ON 17/MAY/2019, MOST RECENT DOSE PRIOR TO THE EVENT: 28/JUN/2019)
     Route: 042
     Dates: start: 20190131
  49. PERTUZUMAB. [Suspect]
     Active Substance: PERTUZUMAB
     Indication: HER2 POSITIVE BREAST CANCER
     Dosage: 420 MG, TIW
     Route: 042
     Dates: start: 20181214, end: 20190109
  50. BEPANTHEN EYE [Concomitant]
     Active Substance: DEXPANTHENOL\HYALURONATE SODIUM
     Indication: CONJUNCTIVITIS
     Dosage: UNK (UNK)
     Route: 065
     Dates: start: 20180619
  51. PANTOLOC [Concomitant]
     Active Substance: PANTOPRAZOLE SODIUM
     Indication: PRODUCT USED FOR UNKNOWN INDICATION
     Dosage: UNK
     Route: 065
     Dates: start: 20191011
  52. KYTRIL [Concomitant]
     Active Substance: GRANISETRON HYDROCHLORIDE
     Indication: PRODUCT USED FOR UNKNOWN INDICATION
     Dosage: UNK (ONGOING = NOT CHECKED)
     Route: 065
     Dates: start: 20190628, end: 20190830
  53. NOVALGINA [Concomitant]
     Active Substance: METAMIZOLE SODIUM
     Indication: PRODUCT USED FOR UNKNOWN INDICATION
     Dosage: UNK
     Route: 065
     Dates: start: 20200224, end: 20200410
  54. TAXOL [Suspect]
     Active Substance: PACLITAXEL
     Indication: HER2 POSITIVE BREAST CANCER
     Dosage: 177.17 MG (MOST RECENT DOSE PRIOR TO THE EVENT: 08/MAY/2018,UNK)
     Route: 042
     Dates: start: 20180416
  55. HYDAL [Concomitant]
     Active Substance: HYDROMORPHONE HYDROCHLORIDE
     Dosage: UNK
     Route: 065
     Dates: start: 20200228, end: 20200311
  56. HYDAL [Concomitant]
     Active Substance: HYDROMORPHONE HYDROCHLORIDE
     Dosage: UNK
     Route: 065
     Dates: start: 20200311, end: 20200410
  57. PACLITAXEL. [Suspect]
     Active Substance: PACLITAXEL
     Dosage: 170.35 MG, QW
     Route: 042
     Dates: start: 20180626, end: 20180718
  58. PACLITAXEL. [Suspect]
     Active Substance: PACLITAXEL
     Dosage: 172.67 MG, QW
     Route: 042
     Dates: start: 20180515, end: 20180515
  59. PACLITAXEL. [Suspect]
     Active Substance: PACLITAXEL
     Dosage: 171.51 MG, QW
     Route: 042
     Dates: start: 20181102, end: 20181123
  60. TRASTUZUMAB. [Suspect]
     Active Substance: TRASTUZUMAB
     Dosage: 372MG (372 MG, 3 WEEKS)
     Route: 042
     Dates: start: 20180626, end: 20181010
  61. CAL D VITA [Concomitant]
     Indication: PRODUCT USED FOR UNKNOWN INDICATION
     Dosage: UNK (UNK)
     Route: 065
     Dates: start: 20190425

REACTIONS (11)
  - Intentional product use issue [Unknown]
  - Off label use [Unknown]
  - Diarrhoea [Recovered/Resolved]
  - Pain of skin [Recovered/Resolved]
  - Dyspnoea [Recovered/Resolved]
  - Stomatitis [Recovered/Resolved]
  - Febrile neutropenia [Recovered/Resolved]
  - Tumour pain [Recovered/Resolved]
  - C-reactive protein increased [Recovered/Resolved]
  - Overdose [Unknown]
  - Breast cancer metastatic [Recovering/Resolving]

NARRATIVE: CASE EVENT DATE: 20190920
